FAERS Safety Report 6314982-4 (Version None)
Quarter: 2009Q3

REPORT INFORMATION
  Report Type: 
  Country: None (occurrence: None)
  Receive Date: 20090819
  Receipt Date: 20090811
  Transmission Date: 20100115
  Serious: Yes (Hospitalization)
  Sender: FDA-Public Use
  Company Number: B0586022A

PATIENT
  Sex: Female
  Weight: 34 kg

DRUGS (4)
  1. LAMICTAL [Suspect]
     Indication: EPILEPSY
     Dosage: 5MG PER DAY
     Route: 048
     Dates: start: 20090709, end: 20090722
  2. LAMICTAL [Suspect]
     Dosage: 5MG TWICE PER DAY
     Route: 048
     Dates: start: 20090723, end: 20090724
  3. SELENICA-R [Suspect]
     Indication: EPILEPSY
     Dosage: 275MG TWICE PER DAY
     Route: 048
     Dates: start: 20071221, end: 20090725
  4. MYSTAN [Suspect]
     Indication: EPILEPSY
     Dosage: 7.5MG TWICE PER DAY
     Route: 048
     Dates: start: 20080612, end: 20090725

REACTIONS (6)
  - CHEILITIS [None]
  - CONJUNCTIVAL HYPERAEMIA [None]
  - ORAL MUCOSAL ERYTHEMA [None]
  - PYREXIA [None]
  - RASH [None]
  - STEVENS-JOHNSON SYNDROME [None]
